FAERS Safety Report 7506213-4 (Version None)
Quarter: 2011Q2

REPORT INFORMATION
  Report Type: 
  Country: None (occurrence: None)
  Receive Date: 20110526
  Receipt Date: 20110107
  Transmission Date: 20111010
  Serious: Yes (Other)
  Sender: FDA-Public Use
  Company Number: CA-JNJFOC-20100904511

PATIENT
  Sex: Male
  Weight: 30.3 kg

DRUGS (2)
  1. CONCERTA [Suspect]
     Indication: ATTENTION DEFICIT/HYPERACTIVITY DISORDER
     Route: 048
     Dates: start: 20100701
  2. CONCERTA [Suspect]
     Route: 048

REACTIONS (3)
  - DRUG INEFFECTIVE [None]
  - TABLET PHYSICAL ISSUE [None]
  - ABNORMAL BEHAVIOUR [None]
